FAERS Safety Report 8498794-1 (Version None)
Quarter: 2012Q3

REPORT INFORMATION
  Report Type: 
  Country: None (occurrence: None)
  Receive Date: 20120709
  Receipt Date: 20101217
  Transmission Date: 20120928
  Serious: Yes (Death)
  Sender: FDA-Public Use
  Company Number: PHHY2010CA82776

PATIENT
  Sex: Male

DRUGS (1)
  1. SANDOSTATIN LAR [Suspect]
     Indication: CARCINOID TUMOUR
     Dosage: 30 MG EVERY 3 WEEKS
     Route: 030
     Dates: start: 20080623, end: 20111004

REACTIONS (5)
  - ABDOMINAL PAIN [None]
  - DIZZINESS [None]
  - DEATH [None]
  - ABDOMINAL DISCOMFORT [None]
  - NASOPHARYNGITIS [None]
